FAERS Safety Report 7234005-2 (Version None)
Quarter: 2011Q1

REPORT INFORMATION
  Report Type: 
  Country: None (occurrence: None)
  Receive Date: 20110119
  Receipt Date: 20101011
  Transmission Date: 20110831
  Serious: No
  Sender: FDA-Public Use
  Company Number: US-BAYER-201022450BCC

PATIENT
  Sex: Female
  Weight: 96.818 kg

DRUGS (2)
  1. METFORMIN HCL [Concomitant]
     Dosage: UNK
  2. ALEVE [Suspect]
     Indication: PRODUCT USED FOR UNKNOWN INDICATION
     Dosage: DAILY DOSE 5 DF
     Route: 048
     Dates: start: 20101008, end: 20101008

REACTIONS (2)
  - DIZZINESS [None]
  - ABDOMINAL DISCOMFORT [None]
